FAERS Safety Report 6247396-6 (Version None)
Quarter: 2009Q2

REPORT INFORMATION
  Report Type: 
  Country: None (occurrence: None)
  Receive Date: 20090626
  Receipt Date: 20090609
  Transmission Date: 20091009
  Serious: Yes (Other)
  Sender: FDA-Public Use
  Company Number: D0061878A

PATIENT
  Age: 8 Year
  Sex: Male

DRUGS (1)
  1. VIANI MITE [Suspect]
     Dosage: 300MCG UNKNOWN
     Route: 055

REACTIONS (3)
  - ABDOMINAL PAIN UPPER [None]
  - GASTROENTERITIS VIRAL [None]
  - VOMITING [None]
